FAERS Safety Report 21378100 (Version 3)
Quarter: 2022Q4

REPORT INFORMATION
  Report Type: Spontaneous
  Country: JP (occurrence: JP)
  Receive Date: 20220926
  Receipt Date: 20221222
  Transmission Date: 20230113
  Serious: Yes (Death, Other)
  Sender: FDA-Public Use
  Company Number: JP-BRISTOL-MYERS SQUIBB COMPANY-2022-107406

PATIENT
  Age: 7 Decade
  Sex: Female

DRUGS (21)
  1. BREYANZI [Suspect]
     Active Substance: LISOCABTAGENE MARALEUCEL
     Indication: Diffuse large B-cell lymphoma
     Dates: start: 20220726, end: 20220726
  2. LENADEX [Suspect]
     Active Substance: DEXAMETHASONE ACETATE
     Indication: Diffuse large B-cell lymphoma
  3. LENADEX [Suspect]
     Active Substance: DEXAMETHASONE ACETATE
     Dates: start: 20220705
  4. LENADEX [Suspect]
     Active Substance: DEXAMETHASONE ACETATE
     Dates: start: 20220731
  5. ETOPOSIDE [Concomitant]
     Active Substance: ETOPOSIDE
     Indication: Diffuse large B-cell lymphoma
  6. CYCLOPHOSPHAMIDE [Concomitant]
     Active Substance: CYCLOPHOSPHAMIDE
     Indication: Diffuse large B-cell lymphoma
  7. CYTARABINE [Concomitant]
     Active Substance: CYTARABINE
     Indication: Diffuse large B-cell lymphoma
  8. RITUXIMAB [Concomitant]
     Active Substance: RITUXIMAB
     Indication: Diffuse large B-cell lymphoma
  9. GEMCITABINE [Concomitant]
     Active Substance: GEMCITABINE
     Indication: Diffuse large B-cell lymphoma
  10. CISPLATIN [Concomitant]
     Active Substance: CISPLATIN
     Indication: Diffuse large B-cell lymphoma
  11. IFOSFAMIDE [Concomitant]
     Active Substance: IFOSFAMIDE
     Indication: Diffuse large B-cell lymphoma
  12. CARBOPLATIN [Concomitant]
     Active Substance: CARBOPLATIN
     Indication: Diffuse large B-cell lymphoma
  13. MESNA [Concomitant]
     Active Substance: MESNA
     Indication: Diffuse large B-cell lymphoma
  14. PREDNISOLONE [Concomitant]
     Active Substance: PREDNISOLONE
     Indication: Diffuse large B-cell lymphoma
  15. VINCRISTINE [Concomitant]
     Active Substance: VINCRISTINE
     Indication: Diffuse large B-cell lymphoma
  16. CANCIDAS [Concomitant]
     Active Substance: CASPOFUNGIN ACETATE
     Indication: Diffuse large B-cell lymphoma
     Dates: start: 20220726
  17. VANCOMYCIN [Concomitant]
     Active Substance: VANCOMYCIN
     Indication: Diffuse large B-cell lymphoma
     Dates: start: 20220726
  18. MEROPENEM [Concomitant]
     Active Substance: MEROPENEM
     Indication: Diffuse large B-cell lymphoma
     Dates: start: 20220726
  19. ACYCLOVIR [Concomitant]
     Active Substance: ACYCLOVIR
     Indication: Diffuse large B-cell lymphoma
     Dates: start: 20220726
  20. SULFAMETHOXAZOLE\TRIMETHOPRIM [Concomitant]
     Active Substance: SULFAMETHOXAZOLE\TRIMETHOPRIM
     Indication: Diffuse large B-cell lymphoma
     Dates: start: 20220726
  21. POLATUZUMAB VEDOTIN [Concomitant]
     Active Substance: POLATUZUMAB VEDOTIN
     Indication: Diffuse large B-cell lymphoma

REACTIONS (6)
  - Malignant neoplasm progression [Fatal]
  - Pyrexia [Unknown]
  - Cytokine release syndrome [Unknown]
  - Blood pressure decreased [Unknown]
  - Altered state of consciousness [Unknown]
  - General physical health deterioration [Unknown]

NARRATIVE: CASE EVENT DATE: 20220721
